FAERS Safety Report 5757218-5 (Version None)
Quarter: 2008Q2

REPORT INFORMATION
  Report Type: 
  Country: None (occurrence: None)
  Receive Date: 20080529
  Receipt Date: 20080513
  Transmission Date: 20081010
  Serious: Yes (Other)
  Sender: FDA-Public Use
  Company Number: 2008AL002966

PATIENT
  Age: 79 Year
  Sex: Male
  Weight: 81.6475 kg

DRUGS (14)
  1. DIGOXIN [Suspect]
     Indication: MYOCARDIAL INFARCTION
     Dosage: 0.125 MG DAILY PO
     Route: 048
  2. THRYOXINE [Concomitant]
  3. IRON PILL [Concomitant]
  4. TORSEMIDE [Concomitant]
  5. FOLTX [Concomitant]
  6. AMIODARONE HCL [Concomitant]
  7. FLOMAX [Concomitant]
  8. WARFARIN SODIUM [Concomitant]
  9. METAFORMIN [Concomitant]
  10. HUMULIN R [Concomitant]
  11. LIPITOR [Concomitant]
  12. ISOSORBIDE DINITRATE [Concomitant]
  13. NIASPAN [Concomitant]
  14. LISINOPRIL [Concomitant]

REACTIONS (3)
  - DIABETIC COMA [None]
  - FALL [None]
  - LOSS OF CONSCIOUSNESS [None]
